FAERS Safety Report 6913962-5 (Version None)
Quarter: 2010Q3

REPORT INFORMATION
  Report Type: 
  Country: None (occurrence: None)
  Receive Date: 20100809
  Receipt Date: 20100730
  Transmission Date: 20110219
  Serious: Yes (Hospitalization, Other)
  Sender: FDA-Public Use
  Company Number: FR-AMGEN-QUU415487

PATIENT
  Sex: Female

DRUGS (7)
  1. VECTIBIX [Suspect]
     Indication: COLORECTAL CANCER
     Dates: start: 20100519
  2. ARIXTRA [Suspect]
  3. UNSPECIFIED ANALGESIC [Suspect]
  4. NSAIDS [Concomitant]
  5. KETOPROFEN [Concomitant]
  6. FELDEN [Concomitant]
  7. LOVENOX [Concomitant]
     Route: 058

REACTIONS (7)
  - DECUBITUS ULCER [None]
  - HAEMOGLOBIN DECREASED [None]
  - HYPERSENSITIVITY [None]
  - PAIN [None]
  - RASH MACULAR [None]
  - RASH MACULO-PAPULAR [None]
  - SKIN TOXICITY [None]
